FAERS Safety Report 9610672 (Version 1)
Quarter: 2013Q4

REPORT INFORMATION
  Report Type: Spontaneous
  Country: US (occurrence: US)
  Receive Date: 20131009
  Receipt Date: 20131009
  Transmission Date: 20140711
  Serious: Yes (Hospitalization, Other)
  Sender: FDA-Public Use
  Company Number: US-BAYER-2013-120044

PATIENT
  Age: 27 Year
  Sex: Female

DRUGS (6)
  1. YAZ [Suspect]
  2. YASMIN [Suspect]
  3. OCELLA [Suspect]
  4. NEXIUM [Concomitant]
  5. TOPAMAX [Concomitant]
  6. MOBIC [Concomitant]

REACTIONS (5)
  - Vena cava thrombosis [None]
  - Thrombosis [None]
  - Abdominal pain lower [None]
  - Pelvic pain [None]
  - Ovarian cyst [None]
